FAERS Safety Report 19092285 (Version 2)
Quarter: 2021Q2

REPORT INFORMATION
  Report Type: Spontaneous
  Country: US (occurrence: US)
  Receive Date: 20210405
  Receipt Date: 20210419
  Transmission Date: 20210717
  Serious: Yes (Other)
  Sender: FDA-Public Use
  Company Number: US-AMGEN-USASP2021051791

PATIENT
  Sex: Male

DRUGS (1)
  1. ENBREL [Suspect]
     Active Substance: ETANERCEPT
     Indication: EXPOSURE DURING PREGNANCY
     Dosage: UNK
     Route: 064

REACTIONS (9)
  - Congenital renal disorder [Unknown]
  - Congenital scoliosis [Unknown]
  - Disturbance in attention [Unknown]
  - Congenital brain damage [Unknown]
  - Gastrointestinal disorder congenital [Unknown]
  - Asthma [Unknown]
  - Parvovirus infection [Unknown]
  - Cytogenetic abnormality [Unknown]
  - Premature baby [Unknown]
